FAERS Safety Report 6670257-5 (Version None)
Quarter: 2010Q2

REPORT INFORMATION
  Report Type: 
  Country: None (occurrence: None)
  Receive Date: 20100406
  Receipt Date: 20100316
  Transmission Date: 20101027
  Serious: No
  Sender: FDA-Public Use
  Company Number: US-ALLERGAN-1003508US

PATIENT
  Age: 34 Year
  Sex: Female

DRUGS (3)
  1. LATISSE [Suspect]
     Indication: GROWTH OF EYELASHES
     Dosage: 1 GTT, QHS
  2. DILTIAZEM HCL [Concomitant]
  3. PLAQUENIL                          /00072601/ [Concomitant]

REACTIONS (2)
  - MADAROSIS [None]
  - TRICHIASIS [None]
